FAERS Safety Report 3570777 (Version 2)
Quarter: 2013Q3

REPORT INFORMATION
  Report Type: Spontaneous
  Country: CA (occurrence: CH)
  Receive Date: 20001120
  Receipt Date: 20130905
  Transmission Date: 20140515
  Serious: Yes (Death)
  Sender: FDA-Public Use
  Company Number: PHBS2000CH10941

PATIENT
  Age: 51 Year
  Sex: Male

DRUGS (6)
  1. CICLOSPORIN [Suspect]
     Indication: LUNG TRANSPLANT
     Dosage: PRESCRIBED 3 MG QH (0.56MG/KG/DAY)
  2. CICLOSPORIN [Suspect]
     Dosage: 30 MG, QH (5.62 MG/KG )
  3. METHYLPREDNISOLONE [Concomitant]
     Indication: LUNG TRANSPLANT
     Dosage: 500 MG, QD
     Route: 065
  4. PREDNISOLONE [Concomitant]
     Indication: LUNG TRANSPLANT
     Dosage: 20 MG/D
     Route: 065
  5. BASILIXIMAB [Concomitant]
     Indication: LUNG TRANSPLANT
     Dosage: 20 MG/D
     Route: 065
  6. PROPOFOL [Concomitant]
     Indication: SEDATION

REACTIONS (8)
  - Brain oedema [Fatal]
  - Intracranial pressure increased [Fatal]
  - Brain compression [Fatal]
  - Mydriasis [Fatal]
  - Brain herniation [Fatal]
  - Areflexia [Fatal]
  - Toxicity to various agents [Fatal]
  - Accidental overdose [Fatal]
